FAERS Safety Report 14391434 (Version 1)
Quarter: 2018Q1

REPORT INFORMATION
  Report Type: Report from Study
  Country: IN (occurrence: IN)
  Receive Date: 20180116
  Receipt Date: 20180116
  Transmission Date: 20180509
  Serious: Yes (Death)
  Sender: FDA-Public Use
  Company Number: IN-BAYER-2018-004139

PATIENT
  Age: 24 Year
  Sex: Female
  Weight: 54 kg

DRUGS (2)
  1. ACETYLSALICYLIC ACID({=100 MG) [Suspect]
     Active Substance: ASPIRIN
     Dosage: UNK
  2. APAP [Suspect]
     Active Substance: ACETAMINOPHEN
     Dosage: 6 G, UNK

REACTIONS (4)
  - Acute hepatic failure [Fatal]
  - Intentional overdose [Fatal]
  - Drug-induced liver injury [Fatal]
  - Exposure during pregnancy [None]
